FAERS Safety Report 9452387 (Version 1)
Quarter: 2013Q3

REPORT INFORMATION
  Report Type: Spontaneous
  Country: US (occurrence: GB)
  Receive Date: 20130812
  Receipt Date: 20130812
  Transmission Date: 20140515
  Serious: Yes (Death, Hospitalization)
  Sender: FDA-Public Use
  Company Number: GB-ACCORD-018807

PATIENT
  Age: 80 Year
  Sex: Female
  Weight: 81.54 kg

DRUGS (2)
  1. COLCHICINE [Suspect]
     Indication: GOUT
     Route: 048
     Dates: start: 201102, end: 201103
  2. ALLOPURINOL [Suspect]
     Indication: GOUT
     Route: 048
     Dates: start: 201102, end: 201103

REACTIONS (7)
  - Toxicity to various agents [Fatal]
  - Circulatory collapse [Not Recovered/Not Resolved]
  - Renal failure [Not Recovered/Not Resolved]
  - Rash pruritic [Not Recovered/Not Resolved]
  - Malaise [Not Recovered/Not Resolved]
  - Pain [Not Recovered/Not Resolved]
  - Inflammation [Not Recovered/Not Resolved]
